FAERS Safety Report 8516920-2 (Version None)
Quarter: 2012Q3

REPORT INFORMATION
  Report Type: 
  Country: None (occurrence: None)
  Receive Date: 20120718
  Receipt Date: 20120709
  Transmission Date: 20120928
  Serious: Yes (Hospitalization, Other)
  Sender: FDA-Public Use
  Company Number: US-ELI_LILLY_AND_COMPANY-US201108002558

PATIENT
  Sex: Female
  Weight: 54.966 kg

DRUGS (20)
  1. FORTEO [Suspect]
     Dosage: 20 UG, QD
     Route: 058
  2. TYLENOL W/ CODEINE [Concomitant]
     Indication: PAIN
     Dosage: UNK, OTHER
     Route: 048
     Dates: start: 20060411
  3. MIDRIN [Concomitant]
     Indication: HEADACHE
     Dosage: UNK, OTHER
     Dates: start: 20081023
  4. FORTEO [Suspect]
     Dosage: 20 UG, QD
     Route: 058
  5. FORTEO [Suspect]
     Indication: OSTEOPOROSIS POSTMENOPAUSAL
     Dosage: 20 UG, QD
     Route: 058
  6. FORTEO [Suspect]
     Dosage: 20 UG, QD
     Route: 058
  7. EVISTA [Suspect]
     Indication: OSTEOPOROSIS PROPHYLAXIS
     Dosage: 60 MG, QD
     Route: 048
  8. EVISTA [Suspect]
     Dosage: 60 MG, QD
     Route: 048
  9. VITAMIN D [Concomitant]
     Dosage: 1 DF, QD
     Route: 048
     Dates: start: 20071116
  10. FORTEO [Suspect]
     Dosage: 20 UG, QD
     Route: 058
  11. NASAL SALINE [Concomitant]
     Dosage: 1 DF, BID
     Route: 045
     Dates: start: 20110224
  12. PROPYLENE GLYCOL [Concomitant]
     Dosage: UNK, OTHER
     Dates: start: 20110224
  13. PRILOSEC [Concomitant]
     Dosage: UNK
  14. FORTEO [Suspect]
     Dosage: 20 UG, QD
     Route: 058
  15. MULTI-VITAMINS [Concomitant]
     Dosage: 1 DF, QD
     Dates: start: 20051011
  16. FLUOXETINE HYDROCHLORIDE [Concomitant]
     Dosage: 1 DF, QD
     Route: 048
  17. CITRACAL-D [Concomitant]
     Dosage: 2 DF, QD
     Dates: start: 20051011
  18. CLONAZEPAM [Concomitant]
     Dosage: UNK UNK, BID
     Route: 048
     Dates: start: 20091105
  19. DOCUSATE SODIUM [Concomitant]
     Dosage: UNK, OTHER
     Route: 048
     Dates: start: 20060816
  20. SEROQUEL [Concomitant]
     Dosage: 1 DF, EACH EVENING
     Route: 048
     Dates: start: 20110406

REACTIONS (18)
  - DECREASED APPETITE [None]
  - OEDEMA PERIPHERAL [None]
  - CONFUSIONAL STATE [None]
  - ROAD TRAFFIC ACCIDENT [None]
  - BONE PAIN [None]
  - LUMBAR VERTEBRAL FRACTURE [None]
  - FALL [None]
  - PAIN [None]
  - ANKLE FRACTURE [None]
  - POST-TRAUMATIC STRESS DISORDER [None]
  - MOBILITY DECREASED [None]
  - LUMBAR SPINAL STENOSIS [None]
  - ARTHRALGIA [None]
  - JOINT INJURY [None]
  - NAUSEA [None]
  - OSTEOPOROSIS [None]
  - ACCIDENT [None]
  - FATIGUE [None]
